FAERS Safety Report 16941787 (Version 1)
Quarter: 2019Q4

REPORT INFORMATION
  Report Type: Spontaneous
  Country: US (occurrence: US)
  Receive Date: 20190829
  Receipt Date: 20190829
  Transmission Date: 20200122
  Serious: Yes (Other)
  Sender: FDA-Public Use
  Company Number: None

PATIENT
  Sex: Male

DRUGS (13)
  1. ASPIRIN LOW; ESZOPICLONA [Concomitant]
  2. NOVOLOG [Concomitant]
     Active Substance: INSULIN ASPART
  3. MYCHOPENOLAT [Concomitant]
  4. CARDVEDILAL [Concomitant]
  5. SERTZALINE [Concomitant]
  6. ATORVASTATIN [Concomitant]
     Active Substance: ATORVASTATIN
  7. CELLCEPT [Suspect]
     Active Substance: MYCOPHENOLATE MOFETIL\MYCOPHENOLATE MOFETIL HYDROCHLORIDE
     Indication: RENAL TRANSPLANT
     Route: 048
  8. AMLODIPINE [Concomitant]
     Active Substance: AMLODIPINE BESYLATE
  9. LACTUS SOLOS INJ [Concomitant]
  10. CYCLOBENZAPT [Concomitant]
  11. TACROLIMUS. [Concomitant]
     Active Substance: TACROLIMUS
  12. VICTOZA [Concomitant]
     Active Substance: LIRAGLUTIDE
  13. LOSARTAN POT [Concomitant]
     Active Substance: LOSARTAN POTASSIUM

REACTIONS (1)
  - Myocardial infarction [None]
